FAERS Safety Report 18048249 (Version 1)
Quarter: 2020Q3

REPORT INFORMATION
  Report Type: Spontaneous
  Country: US (occurrence: US)
  Receive Date: 20200720
  Receipt Date: 20200720
  Transmission Date: 20201103
  Serious: No
  Sender: FDA-Public Use
  Company Number: None

PATIENT
  Age: 60 Year
  Sex: Female
  Weight: 58.5 kg

DRUGS (2)
  1. BIOSILK HAND SANITIZER [Suspect]
     Active Substance: ALCOHOL
     Indication: COVID-19
     Route: 061
     Dates: start: 20200701, end: 20200720
  2. BIOSILK HAND SANITIZER [Suspect]
     Active Substance: ALCOHOL
     Indication: PROPHYLAXIS
     Route: 061
     Dates: start: 20200701, end: 20200720

REACTIONS (1)
  - Nausea [None]

NARRATIVE: CASE EVENT DATE: 20200701
